FAERS Safety Report 18225230 (Version 1)
Quarter: 2020Q3

REPORT INFORMATION
  Report Type: Spontaneous
  Country: US (occurrence: US)
  Receive Date: 20200903
  Receipt Date: 20200903
  Transmission Date: 20201103
  Serious: Yes (Other)
  Sender: FDA-Public Use
  Company Number: US-009507513-2009USA000256

PATIENT
  Sex: Female

DRUGS (1)
  1. KEYTRUDA [Suspect]
     Active Substance: PEMBROLIZUMAB
     Indication: ENDOMETRIAL CANCER
     Dosage: 200 MILLIGRAM, Q3W(EVERY 3 WEEKS)
     Route: 065
     Dates: start: 20200826, end: 20200826

REACTIONS (3)
  - Guillain-Barre syndrome [Unknown]
  - Muscular weakness [Unknown]
  - Myelitis [Unknown]

NARRATIVE: CASE EVENT DATE: 20200828
